FAERS Safety Report 5429111-9 (Version None)
Quarter: 2007Q3

REPORT INFORMATION
  Report Type: 
  Country: None (occurrence: None)
  Receive Date: 20070829
  Receipt Date: 20070820
  Transmission Date: 20080115
  Serious: Yes (Other)
  Sender: FDA-Public Use
  Company Number: US-JNJFOC-20070804171

PATIENT
  Age: 72 Year
  Sex: Female

DRUGS (9)
  1. REMICADE [Suspect]
     Indication: PSORIATIC ARTHROPATHY
     Route: 042
  2. FOLIC ACID [Concomitant]
  3. ENALAPRIL [Concomitant]
  4. GLIMEPIRIDE [Concomitant]
  5. FUROSEMIDE [Concomitant]
  6. POTASSIUM CHLORIDE [Concomitant]
  7. VITAMIN B-12 [Concomitant]
  8. BECONASE [Concomitant]
  9. ADVAIR DISKUS 100/50 [Concomitant]

REACTIONS (1)
  - MULTIPLE MYELOMA [None]
